FAERS Safety Report 23931874 (Version 1)
Quarter: 2024Q2

REPORT INFORMATION
  Report Type: Spontaneous
  Country: US (occurrence: US)
  Receive Date: 20240603
  Receipt Date: 20240603
  Transmission Date: 20240716
  Serious: No
  Sender: FDA-Public Use
  Company Number: US-SANDOZ-SDZ2024US054162

PATIENT
  Sex: Male

DRUGS (1)
  1. AMOXICILLIN\CLAVULANATE POTASSIUM [Suspect]
     Active Substance: AMOXICILLIN\CLAVULANATE POTASSIUM
     Indication: Product used for unknown indication
     Dosage: 200/28.5MG/5ML
     Route: 065
     Dates: start: 20240529, end: 20240529

REACTIONS (5)
  - Erythema [Unknown]
  - Fall [Unknown]
  - Ocular hyperaemia [Unknown]
  - Sunburn [Unknown]
  - Pruritus [Unknown]
